FAERS Safety Report 20153302 (Version 1)
Quarter: 2021Q4

REPORT INFORMATION
  Report Type: Spontaneous
  Country: US (occurrence: US)
  Receive Date: 20211206
  Receipt Date: 20211206
  Transmission Date: 20220303
  Serious: No
  Sender: FDA-Public Use
  Company Number: US-Vifor (International) Inc.-VIT-2021-08788

PATIENT
  Age: 62 Year
  Sex: Male

DRUGS (1)
  1. VELTASSA [Suspect]
     Active Substance: PATIROMER
     Indication: Blood potassium increased

REACTIONS (3)
  - Pain [Unknown]
  - Constipation [Unknown]
  - Product colour issue [Unknown]

NARRATIVE: CASE EVENT DATE: 20211101
